FAERS Safety Report 8623492-0 (Version None)
Quarter: 2012Q3

REPORT INFORMATION
  Report Type: 
  Country: None (occurrence: None)
  Receive Date: 20120824
  Receipt Date: 20120824
  Transmission Date: 20120928
  Serious: No
  Sender: FDA-Public Use
  Company Number: None

PATIENT
  Age: 47 Year
  Sex: Male
  Weight: 83 kg

DRUGS (1)
  1. HYDROMORPHONE HCL [Suspect]
     Indication: PROCEDURAL PAIN
     Dosage: 1MG, ONE TIME, IV BOLUS
     Route: 040
     Dates: start: 20120817, end: 20120817

REACTIONS (1)
  - PRURITUS [None]
